FAERS Safety Report 9029481 (Version 1)
Quarter: 2013Q1

REPORT INFORMATION
  Report Type: Spontaneous
  Country: GB (occurrence: GB)
  Receive Date: 20130124
  Receipt Date: 20130124
  Transmission Date: 20140127
  Serious: Yes (Other)
  Sender: FDA-Public Use
  Company Number: GB-ELI_LILLY_AND_COMPANY-GB201301005044

PATIENT
  Sex: Female

DRUGS (2)
  1. FORSTEO [Suspect]
  2. ENOXAPARIN [Concomitant]

REACTIONS (1)
  - Genital neoplasm malignant female [Recovering/Resolving]
